FAERS Safety Report 23144446 (Version 1)
Quarter: 2023Q4

REPORT INFORMATION
  Report Type: Spontaneous
  Country: US (occurrence: None)
  Receive Date: 20231103
  Receipt Date: 20231103
  Transmission Date: 20240110
  Serious: Yes (unspecified)
  Sender: FDA-Public Use
  Company Number: None

PATIENT
  Age: 34 Year
  Sex: Male

DRUGS (1)
  1. .DELTA.8-TETRAHYDROCANNABIPHOROL\HERBALS [Suspect]
     Active Substance: .DELTA.8-TETRAHYDROCANNABIPHOROL\HERBALS

REACTIONS (4)
  - Agitation [None]
  - Disorientation [None]
  - Overdose [None]
  - Product use issue [None]

NARRATIVE: CASE EVENT DATE: 20231018
